FAERS Safety Report 6457433-1 (Version None)
Quarter: 2009Q4

REPORT INFORMATION
  Report Type: 
  Country: None (occurrence: None)
  Receive Date: 20091125
  Receipt Date: 20091123
  Transmission Date: 20100525
  Serious: Yes (Death, Other)
  Sender: FDA-Public Use
  Company Number: NL-ABBOTT-09P-114-0610398-00

PATIENT
  Sex: Male
  Weight: 89.7 kg

DRUGS (3)
  1. HUMIRA [Suspect]
     Indication: PSORIASIS
     Route: 058
  2. DOVOBET [Concomitant]
     Indication: PSORIASIS
     Route: 061
  3. EMOVATE [Concomitant]
     Indication: PSORIASIS
     Route: 061

REACTIONS (2)
  - HAEMORRHAGE [None]
  - OESOPHAGEAL VARICES HAEMORRHAGE [None]
